FAERS Safety Report 21381841 (Version 1)
Quarter: 2022Q3

REPORT INFORMATION
  Report Type: Report from Study
  Country: CO (occurrence: CO)
  Receive Date: 20220927
  Receipt Date: 20220927
  Transmission Date: 20221026
  Serious: Yes (Other)
  Sender: FDA-Public Use
  Company Number: CO-ALLERGAN-2225080US

PATIENT
  Sex: Female
  Weight: 80 kg

DRUGS (2)
  1. DEXAMETHASONE [Suspect]
     Active Substance: DEXAMETHASONE
     Indication: Macular oedema
     Dosage: 0.7 MG, SINGLE
     Route: 031
     Dates: start: 20220422, end: 20220422
  2. DEXAMETHASONE [Suspect]
     Active Substance: DEXAMETHASONE
     Indication: Retinal vascular occlusion

REACTIONS (7)
  - Blindness transient [Recovered/Resolved]
  - Visual impairment [Recovering/Resolving]
  - Ear pain [Recovering/Resolving]
  - Photophobia [Recovered/Resolved]
  - Stress [Recovering/Resolving]
  - Vision blurred [Recovering/Resolving]
  - Eye pain [Recovered/Resolved]

NARRATIVE: CASE EVENT DATE: 20220101
